FAERS Safety Report 21775487 (Version 2)
Quarter: 2023Q4

REPORT INFORMATION
  Report Type: Spontaneous
  Country: JP (occurrence: JP)
  Receive Date: 20221226
  Receipt Date: 20231211
  Transmission Date: 20240110
  Serious: Yes (Other)
  Sender: FDA-Public Use
  Company Number: JP-TAKEDA-2022TJP079346

PATIENT
  Sex: Male

DRUGS (1)
  1. LEUPLIN [Suspect]
     Active Substance: LEUPROLIDE ACETATE
     Indication: Prostate cancer
     Dosage: STRENGTH: 22.5 MILLIGRAM, Q6MONTHS LEUPLIN PRO FOR INJECTION KIT 22.5 MG
     Route: 065

REACTIONS (3)
  - Erythema [Unknown]
  - Pain in extremity [Unknown]
  - Oedema [Unknown]

NARRATIVE: CASE EVENT DATE: 20221219
